FAERS Safety Report 9841337 (Version 2)
Quarter: 2014Q1

REPORT INFORMATION
  Report Type: Spontaneous
  Country: US (occurrence: US)
  Receive Date: 20140124
  Receipt Date: 20140326
  Transmission Date: 20141002
  Serious: Yes (Hospitalization, Disabling)
  Sender: FDA-Public Use
  Company Number: US-009507513-1401USA010430

PATIENT
  Age: 57 Year
  Sex: Female
  Weight: 50 kg

DRUGS (18)
  1. EMEND [Suspect]
     Indication: VOMITING
     Dosage: 150MG TOTAL DAILY
     Route: 042
     Dates: start: 20131210
  2. EMEND [Suspect]
     Indication: PROPHYLAXIS OF NAUSEA AND VOMITING
     Dosage: 150MG TOTAL DAILY
     Route: 042
     Dates: start: 20131231
  3. EMEND [Suspect]
     Dosage: 150MG TOTAL DAILY
     Route: 042
     Dates: start: 20140121
  4. RITUXIMAB [Concomitant]
     Dosage: UNK
     Dates: start: 20131210
  5. RITUXIMAB [Concomitant]
     Dosage: UNK
     Dates: start: 20131231
  6. RITUXIMAB [Concomitant]
     Dosage: UNK
     Dates: start: 20140121
  7. CYCLOPHOSPHAMIDE [Concomitant]
     Dosage: UNK
     Dates: start: 20131210
  8. CYCLOPHOSPHAMIDE [Concomitant]
     Dosage: UNK
     Dates: start: 20131231
  9. CYCLOPHOSPHAMIDE [Concomitant]
     Dosage: UNK
     Dates: start: 20140121
  10. DOXORUBICIN [Concomitant]
     Dosage: UNK
     Dates: start: 20131210
  11. DOXORUBICIN [Concomitant]
     Dosage: UNK
     Dates: start: 20131231
  12. DOXORUBICIN [Concomitant]
     Dosage: UNK
     Dates: start: 20140121
  13. VINCRISTINE SULFATE [Concomitant]
     Dosage: UNK
     Dates: start: 20131210
  14. VINCRISTINE SULFATE [Concomitant]
     Dosage: UNK
     Dates: start: 20131231
  15. VINCRISTINE SULFATE [Concomitant]
     Dosage: UNK
     Dates: start: 20140121
  16. ALOXI [Concomitant]
     Dosage: UNK
  17. PREDNISONE [Concomitant]
     Dosage: UNK
     Route: 048
  18. DEXAN [Concomitant]

REACTIONS (1)
  - Drug ineffective [Not Recovered/Not Resolved]
